FAERS Safety Report 21699940 (Version 1)
Quarter: 2022Q4

REPORT INFORMATION
  Report Type: Spontaneous
  Country: CN (occurrence: CN)
  Receive Date: 20221208
  Receipt Date: 20221208
  Transmission Date: 20230113
  Serious: Yes (Hospitalization)
  Sender: FDA-Public Use
  Company Number: CN-ELI_LILLY_AND_COMPANY-CN202211014594

PATIENT
  Age: 70 Year
  Sex: Male
  Weight: 66 kg

DRUGS (5)
  1. GEMZAR [Suspect]
     Active Substance: GEMCITABINE HYDROCHLORIDE
     Indication: Bladder cancer
     Dosage: 1.4 G, SINGLE
     Route: 041
     Dates: start: 20221015, end: 20221015
  2. GEMZAR [Suspect]
     Active Substance: GEMCITABINE HYDROCHLORIDE
     Dosage: 1.4 G, SINGLE
     Route: 041
     Dates: start: 20221022, end: 20221022
  3. CARBOPLATIN [Suspect]
     Active Substance: CARBOPLATIN
     Indication: Bladder cancer
     Dosage: 0.4 G, SINGLE
     Route: 041
     Dates: start: 20221016, end: 20221016
  4. GRANULOCYTE COLONY-STIMULATING FACTOR NOS [Concomitant]
     Active Substance: GRANULOCYTE COLONY-STIMULATING FACTOR NOS
     Indication: Prophylactic cranial irradiation
     Dosage: 300 UG, UNKNOWN
     Dates: start: 20221017
  5. POLYETHYLENE GLYCOL RECOMBINANT HUMAN GRANULO [Concomitant]
     Indication: Prophylaxis
     Dosage: 3 MG, UNKNOWN
     Dates: start: 20221023

REACTIONS (1)
  - Myelosuppression [Recovering/Resolving]

NARRATIVE: CASE EVENT DATE: 20221024
